FAERS Safety Report 26153581 (Version 1)
Quarter: 2025Q4

REPORT INFORMATION
  Report Type: Spontaneous
  Country: EU (occurrence: EU)
  Receive Date: 20251214
  Receipt Date: 20251214
  Transmission Date: 20260118
  Serious: Yes (Other)
  Sender: MSN LABORATORIES PRIVATE LIMITED
  Company Number: EU-MSNLABS-2025MSNLIT03809

PATIENT

DRUGS (2)
  1. RIVAROXABAN [Suspect]
     Active Substance: RIVAROXABAN
     Indication: Device related thrombosis
     Dosage: TWICE DAILY
     Route: 048
  2. RIVAROXABAN [Suspect]
     Active Substance: RIVAROXABAN
     Indication: Thrombosis prophylaxis

REACTIONS (2)
  - Post thrombotic syndrome [Unknown]
  - Therapeutic product effect incomplete [Unknown]
